FAERS Safety Report 9001857 (Version 1)
Quarter: 2013Q1

REPORT INFORMATION
  Report Type: Spontaneous
  Country: US (occurrence: US)
  Receive Date: 20130108
  Receipt Date: 20130108
  Transmission Date: 20140127
  Serious: Yes (Hospitalization)
  Sender: FDA-Public Use
  Company Number: US-009507513-1104USA01735

PATIENT
  Age: 68 None
  Sex: Female

DRUGS (9)
  1. VYTORIN [Suspect]
     Indication: BLOOD CHOLESTEROL INCREASED
     Dosage: 10/80 MG ONCE DAILY IN THE EVENING
     Route: 048
     Dates: start: 2005, end: 20110222
  2. BYETTA [Concomitant]
  3. HUMULIN [Concomitant]
  4. COREG CR [Concomitant]
  5. MULTAQ [Concomitant]
  6. PLAVIX [Concomitant]
  7. EXFORGE [Concomitant]
  8. PRADAXA [Concomitant]
  9. PROTONIX [Concomitant]

REACTIONS (3)
  - Myalgia [Recovered/Resolved]
  - Cardiac enzymes increased [Recovered/Resolved]
  - Muscle atrophy [Not Recovered/Not Resolved]
